FAERS Safety Report 4457539-2 (Version None)
Quarter: 2004Q3

REPORT INFORMATION
  Report Type: 
  Country: None (occurrence: None)
  Receive Date: 20040922
  Receipt Date: 20040910
  Transmission Date: 20050211
  Serious: Yes (Hospitalization)
  Sender: FDA-Public Use
  Company Number: 04P-163-0273519-00

PATIENT
  Age: 76 Year
  Sex: Male

DRUGS (1)
  1. ERYTHROMYCIN BASE [Suspect]
     Indication: WOUND
     Dosage: PER ORAL
     Route: 048
     Dates: start: 19990101, end: 19990101

REACTIONS (7)
  - CELLULITIS [None]
  - CEREBROVASCULAR ACCIDENT [None]
  - FALL [None]
  - PHLEBITIS [None]
  - PULMONARY EMBOLISM [None]
  - SPINAL FRACTURE [None]
  - STOMACH DISCOMFORT [None]
